FAERS Safety Report 10908389 (Version 1)
Quarter: 2015Q1

REPORT INFORMATION
  Report Type: Report from Study
  Country: CA (occurrence: CA)
  Receive Date: 20150312
  Receipt Date: 20150312
  Transmission Date: 20150721
  Serious: Yes (Other)
  Sender: FDA-Public Use
  Company Number: CA-ASTRAZENECA-2015SE10066

PATIENT
  Age: 17965 Day
  Sex: Female

DRUGS (8)
  1. CELEBREX [Concomitant]
     Active Substance: CELECOXIB
  2. SYNTHROID [Concomitant]
     Active Substance: LEVOTHYROXINE SODIUM
  3. CAPRELSA [Suspect]
     Active Substance: VANDETANIB
     Indication: MEDULLARY THYROID CANCER
     Route: 048
     Dates: start: 20150121
  4. PANTALOC [Concomitant]
  5. CAPRELSA [Suspect]
     Active Substance: VANDETANIB
     Indication: MEDULLARY THYROID CANCER
     Route: 048
     Dates: start: 20141114, end: 20150117
  6. TRIADERM [Concomitant]
  7. VITAMIN B12 [Concomitant]
     Active Substance: CYANOCOBALAMIN
  8. OXYNEO [Concomitant]
     Active Substance: OXYCODONE

REACTIONS (6)
  - Pruritus [Recovered/Resolved]
  - Rash [Recovered/Resolved]
  - Post procedural complication [Recovered/Resolved]
  - Back pain [Recovered/Resolved]
  - Skin plaque [Recovered/Resolved]
  - Abdominal pain [Recovered/Resolved]

NARRATIVE: CASE EVENT DATE: 20150114
